FAERS Safety Report 6595244-7 (Version None)
Quarter: 2010Q1

REPORT INFORMATION
  Report Type: 
  Country: None (occurrence: None)
  Receive Date: 20100212
  Receipt Date: 20100120
  Transmission Date: 20100710
  Serious: Yes (Death)
  Sender: FDA-Public Use
  Company Number: DSA_42405_2010

PATIENT
  Sex: Male

DRUGS (1)
  1. XENAZINE [Suspect]
     Indication: NEURODEGENERATIVE DISORDER
     Dosage: 12.5 MG TID ORAL
     Route: 048
     Dates: start: 20091111

REACTIONS (1)
  - DYSPNOEA [None]
